FAERS Safety Report 4663216-5 (Version None)
Quarter: 2005Q2

REPORT INFORMATION
  Report Type: 
  Country: None (occurrence: None)
  Receive Date: 20050513
  Receipt Date: 20050428
  Transmission Date: 20051028
  Serious: Yes (Hospitalization, Other)
  Sender: FDA-Public Use
  Company Number: 2005061840

PATIENT
  Age: 72 Year
  Sex: Female
  Weight: 102.0593 kg

DRUGS (4)
  1. BEXTRA [Suspect]
     Indication: ARTHRITIS
     Dosage: 20 MG (20 MG, 1 IN 1 D), ORAL
     Route: 048
     Dates: start: 20030101, end: 20041001
  2. ENALAPRIL MALEATE [Concomitant]
  3. DICLOFENAC SODIUM [Concomitant]
  4. LEVOTHYROXINE SODIUM (LEVOTHYROXIONE SODIUM) [Concomitant]

REACTIONS (10)
  - ARTHRALGIA [None]
  - DRUG INEFFECTIVE [None]
  - EAR DISORDER [None]
  - EAR HAEMORRHAGE [None]
  - EAR PAIN [None]
  - IMPAIRED HEALING [None]
  - PSORIASIS [None]
  - RASH [None]
  - SEPTIC RASH [None]
  - THERAPY NON-RESPONDER [None]
